FAERS Safety Report 12575798 (Version 2)
Quarter: 2016Q3

REPORT INFORMATION
  Report Type: Spontaneous
  Country: US (occurrence: US)
  Receive Date: 20160720
  Receipt Date: 20160817
  Transmission Date: 20161109
  Serious: Yes (Hospitalization)
  Sender: FDA-Public Use
  Company Number: US-BAYER-2016-135979

PATIENT
  Age: 67 Year
  Sex: Male

DRUGS (2)
  1. XOFIGO [Suspect]
     Active Substance: RADIUM RA-223 DICHLORIDE
     Indication: METASTASES TO BONE
     Dosage: 84.65 UCI, ONCE EVERY 28 DAYS
     Route: 042
     Dates: start: 20160711
  2. XOFIGO [Suspect]
     Active Substance: RADIUM RA-223 DICHLORIDE
     Indication: PROSTATE CANCER STAGE IV
     Dosage: 90.15 UCI ONCE EVERY 28 DAYS
     Route: 042
     Dates: start: 20160613

REACTIONS (2)
  - Infection [Not Recovered/Not Resolved]
  - Malaise [None]
